FAERS Safety Report 21655964 (Version 1)
Quarter: 2022Q4

REPORT INFORMATION
  Report Type: Report from Study
  Country: US (occurrence: US)
  Receive Date: 20221129
  Receipt Date: 20221129
  Transmission Date: 20230113
  Serious: No
  Sender: FDA-Public Use
  Company Number: US-ABBVIE-4165179

PATIENT
  Sex: Female

DRUGS (3)
  1. HUMIRA [Suspect]
     Active Substance: ADALIMUMAB
     Indication: Psoriatic arthropathy
     Dosage: STRENGTH : 40MG
     Route: 058
     Dates: start: 202205
  2. METHOTREXATE [Concomitant]
     Active Substance: METHOTREXATE
     Indication: Product used for unknown indication
  3. Moderna [Concomitant]
     Indication: Product used for unknown indication
     Dosage: ONE IN ONCE
     Route: 030

REACTIONS (6)
  - Joint swelling [Recovered/Resolved]
  - Arthralgia [Recovered/Resolved]
  - Gait disturbance [Unknown]
  - Immunodeficiency [Unknown]
  - Psoriatic arthropathy [Unknown]
  - Asthenia [Unknown]
